FAERS Safety Report 8599284-8 (Version None)
Quarter: 2012Q3

REPORT INFORMATION
  Report Type: 
  Country: None (occurrence: None)
  Receive Date: 20120816
  Receipt Date: 20120723
  Transmission Date: 20120928
  Serious: No
  Sender: FDA-Public Use
  Company Number: US-AMGEN-USASP2012043805

PATIENT
  Age: 42 Year
  Sex: Female
  Weight: 55.782 kg

DRUGS (9)
  1. CELEXA [Concomitant]
     Indication: DEPRESSION
     Dosage: 20 MG, QD
  2. NEUPOGEN [Suspect]
     Indication: NEUTROPENIA
     Dosage: 300 MUG, PER CHEMO REGIM
     Dates: start: 20120505, end: 20120605
  3. OXALIPLATIN [Concomitant]
     Indication: COLON CANCER STAGE IV
     Dosage: UNK
  4. LAMICTAL [Concomitant]
     Indication: DEPRESSION
     Dosage: 200 MG, QD
  5. AVASTIN [Concomitant]
     Indication: COLON CANCER STAGE IV
     Dosage: UNK
     Dates: start: 20111005, end: 20120620
  6. FLUOROURACIL [Concomitant]
     Indication: COLON CANCER STAGE IV
     Dosage: UNK
  7. KLONOPIN [Concomitant]
     Indication: ANXIETY
     Dosage: 1 MG, PRN
  8. LEUCOVORIN CALCIUM [Concomitant]
     Indication: COLON CANCER STAGE IV
     Dosage: UNK
  9. FOLFOX-4 [Concomitant]
     Indication: COLON CANCER
     Dosage: UNK
     Dates: start: 20010921, end: 20120622

REACTIONS (2)
  - BONE PAIN [None]
  - BACK PAIN [None]
